FAERS Safety Report 6561230-6 (Version None)
Quarter: 2010Q1

REPORT INFORMATION
  Report Type: 
  Country: None (occurrence: None)
  Receive Date: 20100130
  Receipt Date: 20091009
  Transmission Date: 20100710
  Serious: No
  Sender: FDA-Public Use
  Company Number: US-ABBOTT-09P-163-0601734-00

PATIENT
  Sex: Female

DRUGS (1)
  1. HUMIRA [Suspect]
     Indication: PSORIASIS
     Dosage: DAY 8
     Route: 058
     Dates: start: 20090917

REACTIONS (3)
  - INJECTION SITE PAIN [None]
  - SKIN FISSURES [None]
  - WRONG DRUG ADMINISTERED [None]
